FAERS Safety Report 4832039-6 (Version None)
Quarter: 2005Q4

REPORT INFORMATION
  Report Type: 
  Country: None (occurrence: None)
  Receive Date: 20051116
  Receipt Date: 20051107
  Transmission Date: 20060501
  Serious: Yes (Other)
  Sender: FDA-Public Use
  Company Number: TCI2005A04600

PATIENT
  Age: 60 Year
  Sex: Male

DRUGS (7)
  1. ACTOS [Suspect]
     Indication: DIABETES MELLITUS
     Dosage: 30 MG (30 MG, 1D), PER ORAL
     Route: 048
     Dates: start: 20051006, end: 20051022
  2. PHENOBAL (PHENOBARBITAL) [Suspect]
  3. AMARYL (GLIMEPERIDE) [Concomitant]
  4. CODEINE PHOSPHATE [Concomitant]
  5. HUSTAZOL (CLOPERASTINE HYDROCHLORIDE) [Concomitant]
  6. LACTIC ACID [Concomitant]
  7. ... [Concomitant]

REACTIONS (3)
  - DERMATITIS EXFOLIATIVE [None]
  - TOXIC EPIDERMAL NECROLYSIS [None]
  - URTICARIA [None]
